FAERS Safety Report 4946093-4 (Version None)
Quarter: 2006Q1

REPORT INFORMATION
  Report Type: 
  Country: None (occurrence: None)
  Receive Date: 20060118
  Receipt Date: 20041118
  Transmission Date: 20060701
  Serious: Yes (Other)
  Sender: FDA-Public Use
  Company Number: BDI-006700

PATIENT
  Age: 54 Year
  Sex: Female
  Weight: 57 kg

DRUGS (2)
  1. PROHANCE [Suspect]
     Indication: NUCLEAR MAGNETIC RESONANCE IMAGING BRAIN
     Dosage: IV
     Route: 042
     Dates: start: 20041117, end: 20041117
  2. PROHANCE [Suspect]
     Indication: VERTIGO
     Dosage: IV
     Route: 042
     Dates: start: 20041117, end: 20041117

REACTIONS (2)
  - PHARYNGEAL OEDEMA [None]
  - URTICARIA [None]
